FAERS Safety Report 5850918-8 (Version None)
Quarter: 2008Q3

REPORT INFORMATION
  Report Type: 
  Country: None (occurrence: None)
  Receive Date: 20080819
  Receipt Date: 20080819
  Transmission Date: 20090109
  Serious: No
  Sender: FDA-Public Use
  Company Number: None

PATIENT
  Age: 48 Month
  Sex: Female
  Weight: 82.5547 kg

DRUGS (1)
  1. CLOBETASOL PROPIONATE [Suspect]
     Indication: SKIN DISORDER
     Dosage: 2X A DAY  2X A DAY OPHTHALMIC
     Route: 047
     Dates: start: 20080102, end: 20080818

REACTIONS (1)
  - HYPOAESTHESIA [None]
